FAERS Safety Report 11288440 (Version 1)
Quarter: 2015Q3

REPORT INFORMATION
  Report Type: Spontaneous
  Country: US (occurrence: US)
  Receive Date: 20150721
  Receipt Date: 20150721
  Transmission Date: 20151125
  Serious: Yes (Hospitalization)
  Sender: FDA-Public Use
  Company Number: US-PFIZER INC-2015239708

PATIENT
  Age: 72 Year
  Sex: Female
  Weight: 77 kg

DRUGS (1)
  1. EFFEXOR XR [Suspect]
     Active Substance: VENLAFAXINE HYDROCHLORIDE
     Dosage: 150 MG, UNK

REACTIONS (4)
  - Depression [Unknown]
  - Cerebrovascular accident [Unknown]
  - Paraesthesia [Unknown]
  - Movement disorder [Unknown]

NARRATIVE: CASE EVENT DATE: 201505
